FAERS Safety Report 18242140 (Version 2)
Quarter: 2020Q3

REPORT INFORMATION
  Report Type: Spontaneous
  Country: US (occurrence: US)
  Receive Date: 20200908
  Receipt Date: 20200918
  Transmission Date: 20201103
  Serious: No
  Sender: FDA-Public Use
  Company Number: US-TEVA-2020-US-1824841

PATIENT
  Age: 69 Year
  Sex: Female

DRUGS (1)
  1. ALPRAZOLAM TEVA [Suspect]
     Active Substance: ALPRAZOLAM
     Indication: PANIC DISORDER
     Route: 065

REACTIONS (9)
  - Nausea [Not Recovered/Not Resolved]
  - Vertigo [Not Recovered/Not Resolved]
  - Fall [Unknown]
  - Balance disorder [Not Recovered/Not Resolved]
  - Post-traumatic neck syndrome [Unknown]
  - Vestibular disorder [Unknown]
  - Concussion [Unknown]
  - Dizziness [Not Recovered/Not Resolved]
  - Road traffic accident [Unknown]
